FAERS Safety Report 23165878 (Version 1)
Quarter: 2023Q4

REPORT INFORMATION
  Report Type: Spontaneous
  Country: CN (occurrence: CN)
  Receive Date: 20231109
  Receipt Date: 20231109
  Transmission Date: 20240109
  Serious: Yes (Other)
  Sender: FDA-Public Use
  Company Number: CN-PFIZER INC-PV202300181292

PATIENT
  Age: 52 Year
  Sex: Female
  Weight: 73 kg

DRUGS (3)
  1. PACLITAXEL [Suspect]
     Active Substance: PACLITAXEL
     Indication: Therapeutic procedure
     Dosage: 230 MG, 1X/DAY
     Route: 041
     Dates: start: 20230131, end: 20230201
  2. PARAPLATIN [Suspect]
     Active Substance: CARBOPLATIN
     Indication: Symptomatic treatment
     Dosage: 600 MG, 1X/DAY
     Route: 041
     Dates: start: 20230131, end: 20230201
  3. AVASTIN [Suspect]
     Active Substance: BEVACIZUMAB
     Indication: Symptomatic treatment
     Dosage: 0.5 G, 1X/DAY
     Route: 041
     Dates: start: 20230131, end: 20230201

REACTIONS (3)
  - Abdominal discomfort [Recovering/Resolving]
  - Hypersensitivity [Recovering/Resolving]
  - Temperature intolerance [Recovering/Resolving]

NARRATIVE: CASE EVENT DATE: 20230201
